FAERS Safety Report 10750871 (Version 1)
Quarter: 2015Q1

REPORT INFORMATION
  Report Type: Spontaneous
  Country: FR (occurrence: FR)
  Receive Date: 20150130
  Receipt Date: 20150130
  Transmission Date: 20150721
  Serious: Yes (Death, Hospitalization)
  Sender: FDA-Public Use
  Company Number: FR-JNJFOC-20150117482

PATIENT
  Age: 68 Year
  Sex: Male
  Weight: 92 kg

DRUGS (15)
  1. COVERSYL [Concomitant]
     Active Substance: PERINDOPRIL
     Route: 065
  2. METHOTREXATE [Concomitant]
     Active Substance: METHOTREXATE
     Route: 065
     Dates: start: 201305
  3. METHOTREXATE [Concomitant]
     Active Substance: METHOTREXATE
     Route: 065
     Dates: start: 200609
  4. REMICADE [Suspect]
     Active Substance: INFLIXIMAB
     Indication: PRODUCT USED FOR UNKNOWN INDICATION
     Route: 042
     Dates: start: 20121126, end: 20130402
  5. ENBREL [Suspect]
     Active Substance: ETANERCEPT
     Indication: RHEUMATIC DISORDER
     Dosage: EVEN 10 DAYS
     Route: 058
     Dates: start: 2010, end: 201211
  6. CHRONO-INDOCID [Concomitant]
     Active Substance: INDOMETHACIN
     Route: 065
     Dates: start: 201305
  7. ENBREL [Suspect]
     Active Substance: ETANERCEPT
     Indication: PSORIATIC ARTHROPATHY
     Route: 058
     Dates: start: 201305
  8. CHRONO-INDOCID [Concomitant]
     Active Substance: INDOMETHACIN
     Route: 065
     Dates: start: 1998
  9. METFORMIN [Concomitant]
     Active Substance: METFORMIN HYDROCHLORIDE
     Route: 065
     Dates: start: 200609
  10. ENBREL [Suspect]
     Active Substance: ETANERCEPT
     Indication: RHEUMATIC DISORDER
     Route: 058
     Dates: start: 201305
  11. ENBREL [Suspect]
     Active Substance: ETANERCEPT
     Indication: PSORIATIC ARTHROPATHY
     Dosage: EVEN 10 DAYS
     Route: 058
     Dates: start: 2010, end: 201211
  12. ENBREL [Suspect]
     Active Substance: ETANERCEPT
     Indication: PSORIASIS
     Route: 058
     Dates: start: 201305
  13. ENBREL [Suspect]
     Active Substance: ETANERCEPT
     Indication: PSORIASIS
     Dosage: EVEN 10 DAYS
     Route: 058
     Dates: start: 2010, end: 201211
  14. INEXIUM [Concomitant]
     Active Substance: ESOMEPRAZOLE
     Route: 065
  15. MONO-TILDIEM [Concomitant]
     Active Substance: DILTIAZEM HYDROCHLORIDE
     Route: 065

REACTIONS (5)
  - Malaise [Unknown]
  - Pancreatic carcinoma metastatic [Fatal]
  - Diarrhoea [Unknown]
  - Metastases to liver [Fatal]
  - Hyperthermia [Unknown]

NARRATIVE: CASE EVENT DATE: 201407
